FAERS Safety Report 7683855-7 (Version None)
Quarter: 2011Q3

REPORT INFORMATION
  Report Type: 
  Country: None (occurrence: None)
  Receive Date: 20110815
  Receipt Date: 20110804
  Transmission Date: 20111222
  Serious: Yes (Hospitalization)
  Sender: FDA-Public Use
  Company Number: US-SHIRE-ALL1-2011-02634

PATIENT
  Sex: Female

DRUGS (9)
  1. ADDERALL XR 10 [Suspect]
     Indication: ANXIETY
     Dosage: 30 MG, 1X/DAY:QD
     Route: 048
     Dates: start: 20090101
  2. PERCOCET [Suspect]
     Indication: PAIN
     Dosage: UNK UNK, UNKNOWN
     Route: 048
     Dates: start: 20100101, end: 20100101
  3. GABAPENTIN [Suspect]
     Indication: NERVE INJURY
     Dosage: 300 MG, 3X/DAY:TID
     Route: 048
     Dates: start: 20100901
  4. DIAZEPAM [Concomitant]
     Indication: MUSCLE SPASMS
     Dosage: 5 MG, AS REQ'D
     Route: 048
     Dates: start: 20080101
  5. NORCO [Concomitant]
     Indication: PRODUCT USED FOR UNKNOWN INDICATION
     Dosage: UNK, UNKNOWN
     Route: 065
  6. ADDERALL XR 10 [Suspect]
     Indication: DEPRESSION
     Dosage: 20 MG, 1X/DAY:QD
     Route: 048
     Dates: start: 20090101, end: 20090101
  7. TIZANIDINE                         /00740702/ [Concomitant]
     Indication: MUSCLE SPASMS
     Dosage: UNK UNK, 3X/DAY:TID (2-4 MG)
     Route: 048
     Dates: start: 20080101
  8. OXYCONTIN [Concomitant]
     Indication: SURGERY
     Dosage: 30 MG, 3X/DAY:TID
     Route: 048
     Dates: start: 20080101
  9. IMITREX [Concomitant]
     Indication: MIGRAINE
     Dosage: 100 MG, AS REQ'D
     Route: 048
     Dates: start: 20080101

REACTIONS (8)
  - OBESITY [None]
  - PROCEDURAL COMPLICATION [None]
  - HEADACHE [None]
  - ABNORMAL LOSS OF WEIGHT [None]
  - DRUG INEFFECTIVE [None]
  - WEIGHT INCREASED [None]
  - NERVE INJURY [None]
  - OFF LABEL USE [None]
